FAERS Safety Report 5647088-8 (Version None)
Quarter: 2008Q1

REPORT INFORMATION
  Report Type: 
  Country: None (occurrence: None)
  Receive Date: 20080303
  Receipt Date: 20080218
  Transmission Date: 20080703
  Serious: Yes (Death)
  Sender: FDA-Public Use
  Company Number: BE-JNJFOC-20080205312

PATIENT
  Age: 28 Year
  Sex: Male

DRUGS (2)
  1. TRAMADOL HCL [Suspect]
     Indication: GASTRIC DISORDER
     Route: 065
  2. BENZODIAZEPINE DERIVATIVES [Concomitant]
     Route: 065

REACTIONS (3)
  - APNOEA [None]
  - MULTI-ORGAN FAILURE [None]
  - OVERDOSE [None]
